FAERS Safety Report 12810075 (Version 1)
Quarter: 2016Q4

REPORT INFORMATION
  Report Type: Spontaneous
  Country: US (occurrence: US)
  Receive Date: 20161005
  Receipt Date: 20161005
  Transmission Date: 20170207
  Serious: No
  Sender: FDA-Public Use
  Company Number: US-PFIZER INC-2016460065

PATIENT
  Age: 15 Year
  Sex: Male

DRUGS (1)
  1. RAPAMUNE [Suspect]
     Active Substance: SIROLIMUS
     Indication: ANGIOPATHY
     Dosage: 0.5 MG, 2X/DAY
     Route: 048
     Dates: start: 20160501

REACTIONS (7)
  - Diarrhoea [Recovering/Resolving]
  - Decreased appetite [Recovering/Resolving]
  - Nausea [Recovering/Resolving]
  - Stomatitis [Recovering/Resolving]
  - Malaise [Recovering/Resolving]
  - Drug level below therapeutic [Unknown]
  - Product use issue [Unknown]

NARRATIVE: CASE EVENT DATE: 201605
